FAERS Safety Report 15325517 (Version 1)
Quarter: 2018Q3

REPORT INFORMATION
  Report Type: Spontaneous
  Country: CA (occurrence: CA)
  Receive Date: 20180828
  Receipt Date: 20180828
  Transmission Date: 20181010
  Serious: Yes (Other)
  Sender: FDA-Public Use
  Company Number: CA-PFIZER INC-2018291092

PATIENT
  Age: 57 Year
  Sex: Female

DRUGS (4)
  1. CORTEF [Concomitant]
     Active Substance: HYDROCORTISONE
     Dosage: 15 MG, DAILY
  2. METHOTREXATE SODIUM. [Suspect]
     Active Substance: METHOTREXATE SODIUM
     Indication: RHEUMATOID ARTHRITIS
     Dosage: 20 MG, WEEKLY (ON WEDNESDAYS)
     Route: 048
     Dates: start: 2007
  3. TYLENOL [Concomitant]
     Active Substance: ACETAMINOPHEN
     Indication: ARTHRALGIA
     Dosage: UNK
  4. XELJANZ [Concomitant]
     Active Substance: TOFACITINIB CITRATE
     Indication: RHEUMATOID ARTHRITIS
     Dosage: 5 MG, 2X/DAY
     Route: 048
     Dates: start: 20180709

REACTIONS (8)
  - Diverticulitis [Unknown]
  - Weight decreased [Unknown]
  - Constipation [Not Recovered/Not Resolved]
  - Disease recurrence [Not Recovered/Not Resolved]
  - Drug ineffective [Unknown]
  - Dizziness [Unknown]
  - Headache [Unknown]
  - Eating disorder symptom [Unknown]

NARRATIVE: CASE EVENT DATE: 2017
